FAERS Safety Report 14256265 (Version 1)
Quarter: 2017Q4

REPORT INFORMATION
  Report Type: Spontaneous
  Country: US (occurrence: US)
  Receive Date: 20171206
  Receipt Date: 20171206
  Transmission Date: 20180321
  Serious: No
  Sender: FDA-Public Use
  Company Number: US-BAYER-2017-235568

PATIENT
  Age: 85 Year
  Sex: Male
  Weight: 72.97 kg

DRUGS (14)
  1. VITAMIN D3 [Concomitant]
     Active Substance: CHOLECALCIFEROL
  2. VITAMIN B12 [Concomitant]
     Active Substance: CYANOCOBALAMIN
  3. AMLODIPINE BESYLATE. [Suspect]
     Active Substance: AMLODIPINE BESYLATE
  4. PRAVASTATIN SODIUM. [Concomitant]
     Active Substance: PRAVASTATIN SODIUM
  5. RANITIDINE. [Concomitant]
     Active Substance: RANITIDINE
  6. MIRALAX [Suspect]
     Active Substance: POLYETHYLENE GLYCOL 3350
     Indication: GASTROINTESTINAL DISORDER
     Dosage: 1 CAPFUL DAILY DOSE
     Route: 048
     Dates: start: 201711, end: 20171203
  7. DONEPEZIL. [Concomitant]
     Active Substance: DONEPEZIL
  8. CINNAMON. [Concomitant]
     Active Substance: CINNAMON
  9. FINASTERIDE. [Concomitant]
     Active Substance: FINASTERIDE
  10. CLOPIDOGREL [Suspect]
     Active Substance: CLOPIDOGREL BISULFATE
  11. FERROUS SULFATE. [Concomitant]
     Active Substance: FERROUS SULFATE
     Dosage: 325 MG, UNK
  12. LISINOPRIL. [Suspect]
     Active Substance: LISINOPRIL
  13. ISOSORBIDE. [Concomitant]
     Active Substance: ISOSORBIDE
  14. COENZYME Q10 [Concomitant]
     Active Substance: UBIDECARENONE

REACTIONS (1)
  - Product use issue [Unknown]

NARRATIVE: CASE EVENT DATE: 201711
